FAERS Safety Report 9156392 (Version 2)
Quarter: 2013Q2

REPORT INFORMATION
  Report Type: Spontaneous
  Country: US (occurrence: US)
  Receive Date: 20130312
  Receipt Date: 20130509
  Transmission Date: 20140414
  Serious: No
  Sender: FDA-Public Use
  Company Number: US-BIOGENIDEC-2012BI038272

PATIENT
  Age: 64 Year
  Sex: Female

DRUGS (1)
  1. AVONEX [Suspect]
     Indication: MULTIPLE SCLEROSIS
     Route: 030
     Dates: start: 20010411

REACTIONS (7)
  - Coordination abnormal [Not Recovered/Not Resolved]
  - Polyarthritis [Recovered/Resolved]
  - Feeling cold [Unknown]
  - Adverse event [Unknown]
  - Tension [Unknown]
  - Chills [Recovered/Resolved]
  - Muscular weakness [Not Recovered/Not Resolved]
